FAERS Safety Report 16164630 (Version 2)
Quarter: 2019Q2

REPORT INFORMATION
  Report Type: Report from Study
  Country: US (occurrence: US)
  Receive Date: 20190405
  Receipt Date: 20190430
  Transmission Date: 20190711
  Serious: Yes (Hospitalization)
  Sender: FDA-Public Use
  Company Number: US-PFIZER INC-2019136681

PATIENT
  Age: 14 Year
  Sex: Male
  Weight: 91 kg

DRUGS (15)
  1. ETOPOSIDE (VP-16) [Concomitant]
     Active Substance: ETOPOSIDE
     Dosage: 100 MG/M2, CYCLIC; COURSE A (CYCLES 1,3, AND 5; CYCLE=21 DAYS); OVER 2 HOURS ON DAYS 4 AND 5
     Route: 042
  2. DEXAMETHASONE. [Concomitant]
     Active Substance: DEXAMETHASONE
     Dosage: 5 MG/M2, CYCLIC; COURSE A (CYCLES 1,3, AND 5; CYCLES=21 DAYS) ; BID ON DAYS 1-5
     Route: 048
  3. METHOTREXATE. [Concomitant]
     Active Substance: METHOTREXATE
     Dosage: 3000 MG/M2, CYCLIC;COURSE A (CYCLES 1,3, AND 5; CYCLE=21DAYS); OVER 3 HOURS ON DAY 1
     Route: 042
  4. CYTARABINE. [Concomitant]
     Active Substance: CYTARABINE
     Dosage: UNK UNK, CYCLIC;PROPHASE (CYCLE=5 DAYS); 15-24MG IT ON DAY 1 (AGE-BASED DOSING)
     Route: 037
  5. CYCLOPHOSPHAMIDE. [Concomitant]
     Active Substance: CYCLOPHOSPHAMIDE
     Dosage: 200 MG/M2, CYCLIC; COURSE B (CYCLES 2,4, AND 6; CYCLE=21 DAYS) OVER 15-30MINS ON DAYS 1-5
     Route: 042
  6. CYTARABINE. [Concomitant]
     Active Substance: CYTARABINE
     Dosage: ;COURSE A (CYCLES 1,3,AND 5); OVER 1-30MINS Q12HRS ON DAYS 4 AND 5 (TOTAL 4 DOSES)150 MG/M2, CYCLIC
     Route: 042
  7. CYCLOPHOSPHAMIDE. [Concomitant]
     Active Substance: CYCLOPHOSPHAMIDE
     Dosage: 200 MG/M2, CYCLIC; PROPHASE (CYCLE=5 DAYS) ON DAYS 1 AND 2, OVER 15-30MINS
     Route: 042
  8. METHOTREXATE. [Concomitant]
     Active Substance: METHOTREXATE
     Dosage: UNK UNK, CYCLIC;PROPHASE (CYCLE=5 DAYS); 7.5-12MG IT ON DAY 1 (AGE-BASED DOSING)
     Route: 037
  9. DEXAMETHASONE. [Concomitant]
     Active Substance: DEXAMETHASONE
     Dosage: 5 MG/M2, CYCLIC; PROPHASE (CYCLE=5 DAYS) DAILY ON DAYS 1-2
     Route: 048
  10. DEXAMETHASONE. [Concomitant]
     Active Substance: DEXAMETHASONE
     Dosage: 5 MG/M2, CYCLIC; COURSE B (CYCLES 2,4, AND 6; CYCLE=21 DAYS); BID ON DAYS 1-5
     Route: 048
  11. HYDROCORTISONE. [Concomitant]
     Active Substance: HYDROCORTISONE
     Dosage: CYCLIC;PROPHASE (CYCLE=5 DAYS); 7.5-12MG IT ON DAY 1 (AGE-BASED DOSING)
     Route: 037
  12. DOXORUBICIN HCL [Concomitant]
     Active Substance: DOXORUBICIN HYDROCHLORIDE
     Dosage: ;COURSE B (CYLES 2,4,6; CYCLE=21 DAYS); OVER 1-15 MINS ON DAYS 4 AND 525 MG/M2, CYCLIC
     Route: 042
  13. CRIZOTINIB [Suspect]
     Active Substance: CRIZOTINIB
     Dosage: COURSE A AND B: 165 MG/M2, BID ON DAYS 1-21; TOTAL DOSE ADMINISTERED THIS COURSE: 9450MG
     Route: 048
     Dates: start: 20190115, end: 20190204
  14. METHOTREXATE. [Concomitant]
     Active Substance: METHOTREXATE
     Dosage: 3000 MG/M2, CYCLIC; COURSE B (CYCLES 2,4, AND 6; CYCLE=21 DAYS); OVER 3 HOURS ON DAY 1
     Route: 042
  15. IFOSFAMIDE. [Concomitant]
     Active Substance: IFOSFAMIDE
     Dosage: 800 MG/M2, CYCLIC; COURSE A (CYCLES 1,3, AND 5); OVER 60MINS ON DAYS 1-5
     Route: 042

REACTIONS (1)
  - Embolism [Unknown]

NARRATIVE: CASE EVENT DATE: 20190311
